FAERS Safety Report 4977754-9 (Version None)
Quarter: 2006Q2

REPORT INFORMATION
  Report Type: 
  Country: None (occurrence: None)
  Receive Date: 20060420
  Receipt Date: 20060410
  Transmission Date: 20061013
  Serious: Yes (Other)
  Sender: FDA-Public Use
  Company Number: PHHO2006CL05994

PATIENT
  Age: 47 Year
  Sex: Female

DRUGS (1)
  1. ZELMAC / HTF 919A [Suspect]
     Indication: GASTROINTESTINAL DISORDER
     Dosage: 6 MG, QD
     Route: 048
     Dates: start: 20060101

REACTIONS (1)
  - BILIARY CIRRHOSIS [None]
